FAERS Safety Report 5167595-4 (Version None)
Quarter: 2006Q4

REPORT INFORMATION
  Report Type: 
  Country: None (occurrence: None)
  Receive Date: 20060918
  Receipt Date: 20060714
  Transmission Date: 20070319
  Serious: Yes (Other)
  Sender: FDA-Public Use
  Company Number: US-JNJFOC-20060703407

PATIENT
  Age: 23 Year
  Sex: Male
  Weight: 90.7194 kg

DRUGS (6)
  1. TOPAMAX [Suspect]
     Indication: CONVULSION
     Dosage: SEE IMAGE
     Route: 048
     Dates: start: 20060610, end: 20060616
  2. TOPAMAX [Suspect]
     Indication: CONVULSION
     Dosage: SEE IMAGE
     Route: 048
     Dates: start: 20060617, end: 20060706
  3. TOPAMAX [Suspect]
     Indication: CONVULSION
     Dosage: SEE IMAGE
     Route: 048
     Dates: start: 20060707, end: 20060712
  4. TOPAMAX [Suspect]
     Indication: CONVULSION
     Dosage: SEE IMAGE
     Route: 048
     Dates: start: 20060707, end: 20060712
  5. TOPAMAX [Suspect]
     Indication: CONVULSION
     Dosage: SEE IMAGE
     Route: 048
     Dates: start: 20060713
  6. PHENOBARB (PHENOBARBITAL SODIUM) [Concomitant]

REACTIONS (8)
  - CONJUNCTIVITIS [None]
  - DIARRHOEA [None]
  - DRY MOUTH [None]
  - GRAND MAL CONVULSION [None]
  - LACRIMATION INCREASED [None]
  - PARAESTHESIA [None]
  - POLLAKIURIA [None]
  - SPEECH DISORDER [None]
